FAERS Safety Report 9008981 (Version 1)
Quarter: 2013Q1

REPORT INFORMATION
  Report Type: Spontaneous
  Country: BR (occurrence: BR)
  Receive Date: 20130111
  Receipt Date: 20130111
  Transmission Date: 20140127
  Serious: Yes (Hospitalization)
  Sender: FDA-Public Use
  Company Number: BR-ASTRAZENECA-2013SE00846

PATIENT
  Age: 48 Year
  Sex: Male
  Weight: 80 kg

DRUGS (2)
  1. NEXIUM [Suspect]
     Indication: GASTRITIS
     Dosage: AS NEEDED
     Route: 048
     Dates: start: 2002
  2. NEXIUM [Suspect]
     Indication: GASTROOESOPHAGEAL REFLUX DISEASE
     Dosage: AS NEEDED
     Route: 048
     Dates: start: 2002

REACTIONS (3)
  - Prostate cancer [Unknown]
  - Bone pain [Recovered/Resolved]
  - Prostatic specific antigen increased [Not Recovered/Not Resolved]
